FAERS Safety Report 18915794 (Version 1)
Quarter: 2021Q1

REPORT INFORMATION
  Report Type: Spontaneous
  Country: US (occurrence: US)
  Receive Date: 20210219
  Receipt Date: 20210219
  Transmission Date: 20210420
  Serious: Yes (Hospitalization)
  Sender: FDA-Public Use
  Company Number: US-CELGENEUS-USA-20210203732

PATIENT
  Sex: Female

DRUGS (6)
  1. THALOMID [Suspect]
     Active Substance: THALIDOMIDE
     Dosage: 100 MILLIGRAM
     Route: 048
     Dates: start: 201503
  2. THALOMID [Suspect]
     Active Substance: THALIDOMIDE
     Dosage: 200 MILLIGRAM
     Route: 048
     Dates: start: 20161029
  3. THALOMID [Suspect]
     Active Substance: THALIDOMIDE
     Indication: ERYTHEMA MULTIFORME
     Dosage: 200 MILLIGRAM
     Route: 048
     Dates: start: 201209
  4. THALOMID [Suspect]
     Active Substance: THALIDOMIDE
     Dosage: 100?50 MG
     Route: 048
     Dates: start: 201509
  5. THALOMID [Suspect]
     Active Substance: THALIDOMIDE
     Indication: OFF LABEL USE
     Dosage: 100?50 MG
     Route: 048
     Dates: start: 201301
  6. THALOMID [Suspect]
     Active Substance: THALIDOMIDE
     Dosage: 100?200 MG
     Route: 048
     Dates: start: 201512

REACTIONS (1)
  - Infertility [Not Recovered/Not Resolved]
